FAERS Safety Report 10740798 (Version 1)
Quarter: 2015Q1

REPORT INFORMATION
  Report Type: Spontaneous
  Country: US (occurrence: None)
  Receive Date: 20150123
  Receipt Date: 20150123
  Transmission Date: 20150721
  Serious: Yes (Hospitalization)
  Sender: FDA-Public Use
  Company Number: None

PATIENT
  Age: 34 Year
  Sex: Female
  Weight: 52.6 kg

DRUGS (1)
  1. REMICADE [Suspect]
     Active Substance: INFLIXIMAB
     Indication: CROHN^S DISEASE
     Dosage: 31 ML OUT OF 270MG/277 ML  ONCE  IV INFUSION
     Dates: start: 20140915

REACTIONS (9)
  - Chest discomfort [None]
  - Head discomfort [None]
  - Peripheral coldness [None]
  - Hypersensitivity [None]
  - Nausea [None]
  - Chills [None]
  - Flushing [None]
  - Back pain [None]
  - Infusion related reaction [None]

NARRATIVE: CASE EVENT DATE: 20140915
